FAERS Safety Report 19488765 (Version 2)
Quarter: 2021Q3

REPORT INFORMATION
  Report Type: Spontaneous
  Country: JP (occurrence: JP)
  Receive Date: 20210702
  Receipt Date: 20210719
  Transmission Date: 20211014
  Serious: Yes (Other)
  Sender: FDA-Public Use
  Company Number: JP-GILEAD-2021-0532071

PATIENT
  Age: 70 Year
  Sex: Female

DRUGS (4)
  1. VEKLURY [Suspect]
     Active Substance: REMDESIVIR
     Indication: COVID-19
     Dosage: 200 MG
     Route: 065
     Dates: start: 20210519, end: 20210519
  2. VEKLURY [Suspect]
     Active Substance: REMDESIVIR
     Dosage: 100 MG
     Route: 065
     Dates: start: 20210520, end: 20210523
  3. DECADRON [Suspect]
     Active Substance: DEXAMETHASONE
     Indication: PRODUCT USED FOR UNKNOWN INDICATION
     Dosage: UNK
     Route: 065
  4. TAKECAB [Concomitant]
     Active Substance: VONOPRAZAN FUMARATE

REACTIONS (3)
  - Toxic skin eruption [Recovered/Resolved]
  - Hepatic function abnormal [Unknown]
  - Bradycardia [Recovered/Resolved]

NARRATIVE: CASE EVENT DATE: 20210519
